FAERS Safety Report 8328069-2 (Version None)
Quarter: 2012Q2

REPORT INFORMATION
  Report Type: 
  Country: None (occurrence: None)
  Receive Date: 20120502
  Receipt Date: 20120426
  Transmission Date: 20120825
  Serious: Yes (Other)
  Sender: FDA-Public Use
  Company Number: PHHY2012NL036120

PATIENT
  Sex: Female

DRUGS (2)
  1. ZOMETA [Suspect]
     Dosage: 4MG/100ML ONCE PER 28 DAYS.
     Route: 042
     Dates: start: 20120328
  2. ZOMETA [Suspect]
     Indication: METASTASIS
     Dosage: 4MG/100ML ONCE PER 28 DAYS.
     Route: 042
     Dates: start: 20100830

REACTIONS (1)
  - TERMINAL STATE [None]
